FAERS Safety Report 26086698 (Version 1)
Quarter: 2025Q4

REPORT INFORMATION
  Report Type: Report from Study
  Country: EU (occurrence: EU)
  Receive Date: 20251125
  Receipt Date: 20251125
  Transmission Date: 20260117
  Serious: Yes (Hospitalization)
  Sender: ABBVIE
  Company Number: EU-ABBVIE-6559574

PATIENT
  Age: 66 Year
  Sex: Female

DRUGS (2)
  1. FOSCARBIDOPA\FOSLEVODOPA [Suspect]
     Active Substance: FOSCARBIDOPA\FOSLEVODOPA
     Indication: Parkinson^s disease
     Dosage: CRN: 0.18 ML/H CR: 0.25 ML/H CRH: 0.26 ML/H NO ED, LAST ADMIN DATE: 2025
     Route: 058
     Dates: start: 20250311
  2. FOSCARBIDOPA\FOSLEVODOPA [Suspect]
     Active Substance: FOSCARBIDOPA\FOSLEVODOPA
     Dosage: FIRST ADMIN DATE: 2025?CRN: 0.18ML/H, CR: 0.25ML/H, CRH: 0.26ML/H, ED: 0.10ML
     Route: 058

REACTIONS (4)
  - Coma [Recovering/Resolving]
  - Unresponsive to stimuli [Unknown]
  - Hypotension [Unknown]
  - Confusional state [Recovering/Resolving]

NARRATIVE: CASE EVENT DATE: 20251114
